FAERS Safety Report 17151098 (Version 1)
Quarter: 2019Q4

REPORT INFORMATION
  Report Type: Spontaneous
  Country: AU (occurrence: AU)
  Receive Date: 20191213
  Receipt Date: 20191213
  Transmission Date: 20200122
  Serious: Yes (Hospitalization, Other)
  Sender: FDA-Public Use
  Company Number: AU-009507513-1912AUS003526

PATIENT
  Age: 62 Year
  Sex: Female

DRUGS (12)
  1. PREDNISOLONE. [Suspect]
     Active Substance: PREDNISOLONE
     Indication: PYODERMA GANGRENOSUM
     Dosage: 40 MG DAILY
     Route: 048
  2. DAPSONE. [Concomitant]
     Active Substance: DAPSONE
     Indication: PYODERMA GANGRENOSUM
     Dosage: 50 MG, DAILY
  3. PREDNISOLONE. [Suspect]
     Active Substance: PREDNISOLONE
     Dosage: 40 MG DAILY
     Route: 048
  4. TACROLIMUS. [Suspect]
     Active Substance: TACROLIMUS
     Indication: PYODERMA GANGRENOSUM
     Route: 061
  5. INFLIXIMAB [Concomitant]
     Active Substance: INFLIXIMAB
     Indication: PYODERMA GANGRENOSUM
     Dosage: EVERY 2 WEEKS
  6. PREDNISOLONE. [Suspect]
     Active Substance: PREDNISOLONE
     Dosage: 4 MG DAILY
     Route: 048
  7. MYCOPHENOLATE MOFETIL. [Concomitant]
     Active Substance: MYCOPHENOLATE MOFETIL
     Indication: PYODERMA GANGRENOSUM
     Dosage: 500 MG TWICE DAILY
  8. POTASSIUM IODIDE. [Concomitant]
     Active Substance: POTASSIUM IODIDE
     Indication: PYODERMA GANGRENOSUM
     Dosage: 300 MG THREE TIMES DAILY
  9. DIPROSONE [Suspect]
     Active Substance: BETAMETHASONE DIPROPIONATE
     Indication: PYODERMA GANGRENOSUM
     Route: 061
  10. PREDNISOLONE. [Suspect]
     Active Substance: PREDNISOLONE
     Dosage: TO THE PPG LESIONS
     Route: 061
  11. KENACORT [Suspect]
     Active Substance: TRIAMCINOLONE
     Indication: PYODERMA GANGRENOSUM
     Route: 061
  12. MINOCYCLINE [Concomitant]
     Active Substance: MINOCYCLINE HYDROCHLORIDE
     Indication: PYODERMA GANGRENOSUM
     Dosage: 50 MG DAILY
     Route: 048

REACTIONS (6)
  - Weight increased [Unknown]
  - Myopathy [Unknown]
  - Urosepsis [Unknown]
  - Rectal haemorrhage [Unknown]
  - Dyspnoea [Unknown]
  - Pulmonary embolism [Unknown]
